FAERS Safety Report 10008827 (Version 1)
Quarter: 2014Q1

REPORT INFORMATION
  Report Type: Spontaneous
  Country: US (occurrence: US)
  Receive Date: 20140313
  Receipt Date: 20140313
  Transmission Date: 20141002
  Serious: No
  Sender: FDA-Public Use
  Company Number: US-INCYTE CORPORATION-2012IN000832

PATIENT
  Age: 67 Year
  Sex: Female

DRUGS (6)
  1. JAKAFI [Suspect]
     Indication: MYELOFIBROSIS
     Dosage: 15 MG, BID
     Route: 048
     Dates: start: 2012, end: 20120513
  2. JAKAFI [Suspect]
     Dosage: 7.5 MG, BID
     Route: 048
     Dates: start: 20120514
  3. GABAPENTIN [Concomitant]
     Dosage: 600 MG, TID
  4. LISINOPRIL [Concomitant]
     Dosage: 20 MG, QD
  5. FUROSEMIDE [Concomitant]
     Dosage: 20 MG, TID
  6. AMITRIPTYLINE [Concomitant]
     Dosage: 50 MG, AT BEDTIME

REACTIONS (2)
  - Platelet count decreased [Unknown]
  - Wrong technique in drug usage process [Not Recovered/Not Resolved]
